FAERS Safety Report 7917491-1 (Version None)
Quarter: 2011Q4

REPORT INFORMATION
  Report Type: 
  Country: None (occurrence: None)
  Receive Date: 20111116
  Receipt Date: 20091214
  Transmission Date: 20120403
  Serious: No
  Sender: FDA-Public Use
  Company Number: US-ENDO PHARMACEUTICALS INC.-PHEB20110027

PATIENT
  Sex: Female

DRUGS (4)
  1. TOPAMAX [Concomitant]
  2. BANZEL [Concomitant]
  3. MULTI-VITAMINS [Concomitant]
  4. PHENOBARBITAL TAB [Suspect]
     Indication: GRAND MAL CONVULSION
     Route: 048
     Dates: start: 20091101

REACTIONS (2)
  - ANTICONVULSANT DRUG LEVEL BELOW THERAPEUTIC [None]
  - CONVULSION [None]
